FAERS Safety Report 23411395 (Version 1)
Quarter: 2024Q1

REPORT INFORMATION
  Report Type: Spontaneous
  Country: CN (occurrence: CN)
  Receive Date: 20240117
  Receipt Date: 20240117
  Transmission Date: 20240410
  Serious: Yes (Other)
  Sender: FDA-Public Use
  Company Number: CN-PFIZER INC-PV202400003995

PATIENT
  Age: 40 Year
  Sex: Female

DRUGS (2)
  1. CYTARABINE [Suspect]
     Active Substance: CYTARABINE
     Indication: Acute myeloid leukaemia
     Dosage: 0.1 G, 2X/DAY D1-7
     Route: 041
     Dates: start: 20231202, end: 20231208
  2. DAUNORUBICIN HYDROCHLORIDE [Suspect]
     Active Substance: DAUNORUBICIN HYDROCHLORIDE
     Indication: Acute myeloid leukaemia
     Dosage: 90 MG, 1XDAY D1-3
     Route: 041
     Dates: start: 20231202, end: 20231204

REACTIONS (5)
  - Pyrexia [Recovered/Resolved]
  - Conjunctival hyperaemia [Recovered/Resolved]
  - C-reactive protein increased [Unknown]
  - Procalcitonin increased [Unknown]
  - Infection [Unknown]

NARRATIVE: CASE EVENT DATE: 20231205
